FAERS Safety Report 4509496-8 (Version None)
Quarter: 2004Q4

REPORT INFORMATION
  Report Type: 
  Country: None (occurrence: None)
  Receive Date: 20041119
  Receipt Date: 20041028
  Transmission Date: 20050328
  Serious: Yes (Hospitalization)
  Sender: FDA-Public Use
  Company Number: USA040979314

PATIENT
  Age: 79 Year
  Sex: Female

DRUGS (6)
  1. EVISTA [Suspect]
     Dosage: 60 MG/1 DAY
     Dates: start: 20030101, end: 20040922
  2. FORTEO [Suspect]
     Dosage: 20 UG/1 DAY
     Dates: start: 20040923
  3. OXYGEN [Concomitant]
  4. PREDNISON (PREDNISONE) [Concomitant]
  5. COMBIVENT [Concomitant]
  6. SEREVENT [Concomitant]

REACTIONS (10)
  - CHEST PAIN [None]
  - CHRONIC OBSTRUCTIVE AIRWAYS DISEASE [None]
  - CONSTIPATION [None]
  - FLATULENCE [None]
  - HOT FLUSH [None]
  - HYPERHIDROSIS [None]
  - INSOMNIA [None]
  - LOSS OF CONSCIOUSNESS [None]
  - THYROID NEOPLASM [None]
  - URTICARIA GENERALISED [None]
